FAERS Safety Report 6185073-0 (Version None)
Quarter: 2009Q2

REPORT INFORMATION
  Report Type: 
  Country: None (occurrence: None)
  Receive Date: 20090511
  Receipt Date: 20090506
  Transmission Date: 20091009
  Serious: No
  Sender: FDA-Public Use
  Company Number: US-JNJFOC-20090501567

PATIENT
  Sex: Male
  Weight: 81.65 kg

DRUGS (14)
  1. FENTANYL TRANSDERMAL SYSTEM [Suspect]
     Indication: PAIN
     Route: 062
  2. LABETALOL HCL [Suspect]
     Indication: HYPERTENSION
     Route: 048
  3. CARDURA [Suspect]
     Indication: HYPERTENSION
     Dosage: AT NIGHT
     Route: 048
  4. PROCARDIA [Suspect]
     Indication: HYPERTENSION
     Route: 048
  5. LISINOPRIL [Concomitant]
     Indication: HYPERTENSION
     Route: 048
  6. CATAPRES [Concomitant]
     Indication: HYPERTENSION
     Route: 062
  7. DILANTIN [Concomitant]
     Indication: CONVULSION
     Route: 048
  8. BACLOFEN [Concomitant]
     Indication: MUSCLE SPASTICITY
     Route: 048
  9. ZOCOR [Concomitant]
     Indication: BLOOD CHOLESTEROL
     Route: 048
  10. SYNTHROID [Concomitant]
     Indication: HYPOTHYROIDISM
  11. PAMELOR [Concomitant]
     Indication: SLEEP DISORDER THERAPY
     Route: 048
  12. VALIUM [Concomitant]
     Dosage: AT NIGHT/AS NEEDED
     Route: 048
  13. ASPIRIN [Concomitant]
     Indication: ANTICOAGULANT THERAPY
     Route: 048
  14. LACTOSE [Concomitant]
     Indication: CONSTIPATION
     Route: 048

REACTIONS (4)
  - BLOOD PRESSURE DECREASED [None]
  - BLOOD PRESSURE INCREASED [None]
  - DRUG DOSE OMISSION [None]
  - DRUG INEFFECTIVE [None]
